FAERS Safety Report 14354962 (Version 1)
Quarter: 2018Q1

REPORT INFORMATION
  Report Type: Spontaneous
  Country: US (occurrence: US)
  Receive Date: 20180104
  Receipt Date: 20180104
  Transmission Date: 20180509
  Serious: Yes (Disabling, Other)
  Sender: FDA-Public Use
  Company Number: None

PATIENT
  Age: 69 Year
  Sex: Female
  Weight: 67.5 kg

DRUGS (4)
  1. PROLIA [Suspect]
     Active Substance: DENOSUMAB
     Indication: OSTEOPENIA
     Dosage: IM EVERY 6 MOS?
     Route: 030
  2. CALCIUM CITRATE [Concomitant]
     Active Substance: CALCIUM CITRATE
  3. MULTI VITAMIN [Concomitant]
     Active Substance: VITAMINS
  4. AMBIEN (GENERIC) 10MG [Concomitant]
     Active Substance: ZOLPIDEM TARTRATE

REACTIONS (7)
  - Asthenia [None]
  - Insomnia [None]
  - Back pain [None]
  - Arthralgia [None]
  - Musculoskeletal stiffness [None]
  - Hypoaesthesia [None]
  - Cough [None]

NARRATIVE: CASE EVENT DATE: 20171120
